FAERS Safety Report 25492817 (Version 1)
Quarter: 2025Q2

REPORT INFORMATION
  Report Type: Spontaneous
  Country: US (occurrence: US)
  Receive Date: 20250630
  Receipt Date: 20250630
  Transmission Date: 20250717
  Serious: Yes (Other)
  Sender: APOTEX
  Company Number: US-APOTEX-2025AP008982

PATIENT
  Age: 20 Year
  Sex: Male

DRUGS (13)
  1. DIVALPROEX SODIUM [Suspect]
     Active Substance: DIVALPROEX SODIUM
     Indication: Epilepsy
     Route: 065
  2. CLOBAZAM [Suspect]
     Active Substance: CLOBAZAM
     Indication: Epilepsy
     Route: 065
  3. CARBAMAZEPINE [Suspect]
     Active Substance: CARBAMAZEPINE
     Indication: Epilepsy
     Route: 065
  4. TOPIRAMATE [Suspect]
     Active Substance: TOPIRAMATE
     Indication: Epilepsy
     Route: 065
  5. LAMOTRIGINE [Suspect]
     Active Substance: LAMOTRIGINE
     Indication: Epilepsy
     Route: 065
  6. FELBAMATE [Suspect]
     Active Substance: FELBAMATE
     Indication: Epilepsy
     Route: 065
  7. FELBAMATE [Suspect]
     Active Substance: FELBAMATE
     Dosage: 5 MILLIGRAM/KILOGRAM, Q.12H ON DAY 2
     Route: 065
  8. FELBAMATE [Suspect]
     Active Substance: FELBAMATE
     Dosage: 4.2 MILLIGRAM/KILOGRAM, TID ON DAY 3
     Route: 065
  9. FELBAMATE [Suspect]
     Active Substance: FELBAMATE
     Dosage: 4.2 MILLIGRAM/KILOGRAM, Q.12H FOR 2 DOSES
     Route: 065
  10. FELBAMATE [Suspect]
     Active Substance: FELBAMATE
     Dosage: 5.6 MILLIGRAM/KILOGRAM, Q.12H
     Route: 065
  11. FELBAMATE [Suspect]
     Active Substance: FELBAMATE
     Dosage: 1.4 MILLIGRAM/KILOGRAM, Q.12H
     Route: 065
  12. FELBAMATE [Suspect]
     Active Substance: FELBAMATE
     Dosage: 4.2 MILLIGRAM/KILOGRAM, Q.12H
     Route: 065
  13. FELBAMATE [Suspect]
     Active Substance: FELBAMATE
     Route: 065

REACTIONS (6)
  - Tonic convulsion [Recovered/Resolved]
  - Atonic seizures [Recovered/Resolved]
  - Dermatitis allergic [Recovered/Resolved]
  - Rash erythematous [Recovered/Resolved]
  - Rash maculo-papular [Recovered/Resolved]
  - Treatment failure [Unknown]
